FAERS Safety Report 23014260 (Version 1)
Quarter: 2023Q4

REPORT INFORMATION
  Report Type: Spontaneous
  Country: US (occurrence: US)
  Receive Date: 20231002
  Receipt Date: 20231002
  Transmission Date: 20240109
  Serious: Yes (Hospitalization)
  Sender: FDA-Public Use
  Company Number: US-CATALYSTPHARMACEUTICALPARTNERS-US-CATA-23-00553

PATIENT
  Age: 67 Year
  Sex: Male

DRUGS (2)
  1. AMIFAMPRIDINE [Suspect]
     Active Substance: AMIFAMPRIDINE
     Indication: Myasthenic syndrome
     Dosage: 100 MILLIGRAM, SINGLE
     Route: 065
     Dates: start: 2023
  2. ACETAMINOPHEN [Suspect]
     Active Substance: ACETAMINOPHEN
     Indication: Product used for unknown indication
     Dosage: 24.5 GRAM, SINGLE
     Route: 065
     Dates: start: 2023

REACTIONS (3)
  - Suicide attempt [Unknown]
  - New onset refractory status epilepticus [Recovered/Resolved]
  - Intentional overdose [Unknown]

NARRATIVE: CASE EVENT DATE: 20230101
